FAERS Safety Report 11038578 (Version 2)
Quarter: 2015Q3

REPORT INFORMATION
  Report Type: Spontaneous
  Country: US (occurrence: US)
  Receive Date: 20150416
  Receipt Date: 20150706
  Transmission Date: 20151125
  Serious: Yes (Other)
  Sender: FDA-Public Use
  Company Number: US-PFIZER INC-2015075688

PATIENT
  Age: 58 Year
  Sex: Female

DRUGS (10)
  1. PHENOBARBITAL. [Suspect]
     Active Substance: PHENOBARBITAL
     Indication: SEIZURE
     Dosage: 96.6 MG (3-32.2 MG), DAILY
     Dates: start: 195804
  2. RANITIDINE [Concomitant]
     Active Substance: RANITIDINE\RANITIDINE HYDROCHLORIDE
     Indication: GASTROOESOPHAGEAL REFLUX DISEASE
     Dosage: UNK
     Dates: start: 2002, end: 201411
  3. DILANTIN [Suspect]
     Active Substance: PHENYTOIN
     Indication: SEIZURE
     Dosage: 300 MG, 1X/DAY
     Dates: start: 1971
  4. VITAMIN D2 [Concomitant]
     Active Substance: ERGOCALCIFEROL
     Dosage: 1.25 MG, UNK
     Dates: start: 201505
  5. OMEPRAZOLE. [Concomitant]
     Active Substance: OMEPRAZOLE
     Indication: GASTROOESOPHAGEAL REFLUX DISEASE
     Dosage: 80 MG (2-40 MG), DAILY
     Dates: start: 201411
  6. AMITIZA [Concomitant]
     Active Substance: LUBIPROSTONE
     Dosage: 24 MG, UNK
     Dates: start: 201409
  7. OMEPRAZOLE. [Concomitant]
     Active Substance: OMEPRAZOLE
     Dosage: 40 MG, UNK
     Dates: start: 201409
  8. AMITIZA [Concomitant]
     Active Substance: LUBIPROSTONE
     Indication: CONSTIPATION
     Dosage: 24 MG, 2X/DAY
     Dates: start: 201411
  9. BABY ASPIRIN [Concomitant]
     Active Substance: ASPIRIN
     Indication: CARDIAC DISORDER
     Dosage: 1.81 MG, DAILY
     Dates: start: 2008
  10. BABY ASPIRIN [Concomitant]
     Active Substance: ASPIRIN
     Dosage: 81 MG, UNK
     Dates: start: 2006

REACTIONS (9)
  - Bone density decreased [Unknown]
  - Increased tendency to bruise [Unknown]
  - Hyporeflexia [Unknown]
  - Pyrexia [Unknown]
  - Wrist fracture [Unknown]
  - Gingival hypertrophy [Unknown]
  - Clumsiness [Unknown]
  - Drug effect incomplete [Unknown]
  - Coordination abnormal [Unknown]
